FAERS Safety Report 11527008 (Version 1)
Quarter: 2015Q3

REPORT INFORMATION
  Report Type: Spontaneous
  Country: US (occurrence: US)
  Receive Date: 20150903
  Receipt Date: 20150903
  Transmission Date: 20151125
  Serious: No
  Sender: FDA-Public Use
  Company Number: US-ELI_LILLY_AND_COMPANY-US200909004614

PATIENT
  Sex: Male

DRUGS (9)
  1. HUMALOG [Suspect]
     Active Substance: INSULIN LISPRO
     Dosage: 30 U, UNK
     Dates: start: 20090917, end: 20090917
  2. HUMALOG [Suspect]
     Active Substance: INSULIN LISPRO
     Dosage: 120 U, UNK
     Dates: start: 20090918, end: 20090918
  3. HUMALOG [Suspect]
     Active Substance: INSULIN LISPRO
     Dosage: 174 U, EACH EVENING
  4. HUMALOG [Suspect]
     Active Substance: INSULIN LISPRO
     Dosage: 60 U, 3/D
  5. HUMALOG [Suspect]
     Active Substance: INSULIN LISPRO
     Dosage: 146 U, DAILY (1/D)
  6. HUMALOG [Suspect]
     Active Substance: INSULIN LISPRO
  7. LEVEMIR [Concomitant]
     Active Substance: INSULIN DETEMIR
     Dosage: 40 U, UNK
  8. HUMALOG [Suspect]
     Active Substance: INSULIN LISPRO
     Dosage: 104 U, DAILY (1/D)
  9. HUMALOG [Suspect]
     Active Substance: INSULIN LISPRO
     Dosage: 180 U, UNK
     Dates: start: 20090917, end: 20090917

REACTIONS (5)
  - Blood glucose decreased [Not Recovered/Not Resolved]
  - Dizziness [Unknown]
  - Fall [Unknown]
  - Blood glucose increased [Not Recovered/Not Resolved]
  - Upper limb fracture [Recovering/Resolving]

NARRATIVE: CASE EVENT DATE: 200908
